FAERS Safety Report 14119175 (Version 3)
Quarter: 2017Q4

REPORT INFORMATION
  Report Type: Spontaneous
  Country: IT (occurrence: IT)
  Receive Date: 20171024
  Receipt Date: 20171101
  Transmission Date: 20180321
  Serious: Yes (Death, Other)
  Sender: FDA-Public Use
  Company Number: IT-SUN PHARMACEUTICAL INDUSTRIES LTD-2017RR-152881

PATIENT
  Age: 72 Year
  Sex: Male

DRUGS (9)
  1. CARBOPLATIN. [Suspect]
     Active Substance: CARBOPLATIN
     Indication: METASTASES TO CENTRAL NERVOUS SYSTEM
  2. PEMETREXED. [Suspect]
     Active Substance: PEMETREXED
     Indication: LUNG SQUAMOUS CELL CARCINOMA STAGE IV
     Dosage: 500 MG/M2, ON DAY 1, EVERY 21 DAYS, 2 CYCLES
     Route: 065
     Dates: start: 200812
  3. CARBOPLATIN. [Suspect]
     Active Substance: CARBOPLATIN
     Indication: LUNG SQUAMOUS CELL CARCINOMA STAGE IV
     Dosage: AREA UNDER THE CURVE 5
     Route: 065
     Dates: start: 200810
  4. ERLOTINIB [Suspect]
     Active Substance: ERLOTINIB
     Dosage: DISCONTINUATION FOR 2 WEEKS
     Route: 065
  5. PACLITAXEL. [Suspect]
     Active Substance: PACLITAXEL
     Indication: METASTASES TO CENTRAL NERVOUS SYSTEM
     Dosage: ON DAY 1, EVERY 21 DAYS
     Route: 065
     Dates: start: 200810
  6. PEMETREXED. [Suspect]
     Active Substance: PEMETREXED
     Indication: METASTASES TO CENTRAL NERVOUS SYSTEM
  7. ERLOTINIB [Suspect]
     Active Substance: ERLOTINIB
     Indication: LUNG SQUAMOUS CELL CARCINOMA STAGE IV
     Dosage: DRUG DISCONTINUED FOR 10 DAYS AND THEN READMINISTERED AT A REDUCED DOSE OF 100 MG/DAY
     Route: 065
     Dates: start: 200902, end: 201509
  8. PACLITAXEL. [Suspect]
     Active Substance: PACLITAXEL
     Indication: LUNG SQUAMOUS CELL CARCINOMA STAGE IV
     Dosage: 2 CYCLES
     Route: 065
  9. ERLOTINIB [Suspect]
     Active Substance: ERLOTINIB
     Indication: METASTASES TO CENTRAL NERVOUS SYSTEM
     Dosage: 150 MG, DAILY
     Route: 065
     Dates: start: 200902

REACTIONS (6)
  - Neuropathy peripheral [Unknown]
  - Rash [Recovering/Resolving]
  - Toxicity to various agents [Unknown]
  - Asthenia [Unknown]
  - Leukopenia [Unknown]
  - Disease progression [Recovering/Resolving]

NARRATIVE: CASE EVENT DATE: 2008
